FAERS Safety Report 9569781 (Version 3)
Quarter: 2014Q1

REPORT INFORMATION
  Report Type: Spontaneous
  Country: US (occurrence: US)
  Receive Date: 20130930
  Receipt Date: 20140203
  Transmission Date: 20141002
  Serious: Yes (Other)
  Sender: FDA-Public Use
  Company Number: US-AMGEN-USASP2013066068

PATIENT
  Age: 66 Year
  Sex: Female
  Weight: 110.66 kg

DRUGS (11)
  1. ENBREL [Suspect]
     Indication: RHEUMATOID ARTHRITIS
     Dosage: 50 MG, QWK
     Route: 058
     Dates: start: 20130910
  2. CELEBREX [Concomitant]
     Indication: PAIN
     Dosage: 200 MG, BID
     Route: 048
  3. PROLIA [Concomitant]
     Indication: OSTEOPOROSIS
     Dosage: 60 MG, Q6MO
     Route: 058
     Dates: start: 2010
  4. PREDNISONE [Concomitant]
     Indication: RHEUMATOID ARTHRITIS
     Dosage: 5 MG, QD
     Route: 048
     Dates: start: 2003
  5. OMEPRAZOLE [Concomitant]
     Indication: GASTROOESOPHAGEAL REFLUX DISEASE
     Dosage: 10 MG, QD
     Route: 048
     Dates: start: 2003
  6. CLARITIN                           /00413701/ [Concomitant]
     Indication: HYPERSENSITIVITY
     Dosage: 10 MG, AS NECESSARY
     Route: 048
     Dates: start: 2003
  7. BABY ASPIRIN [Concomitant]
     Indication: PAIN
     Dosage: 81 MG, QD
     Route: 048
     Dates: start: 2008
  8. OXYCONTIN [Concomitant]
     Indication: PAIN
     Dosage: 20 MG, AS NECESSARY
     Route: 048
     Dates: start: 2003
  9. TRAMADOL [Concomitant]
     Indication: PAIN
     Dosage: 50 MG, AS NECESSARY
     Route: 048
  10. PROAIR                             /00139502/ [Concomitant]
     Indication: ASTHMA
     Dosage: 90 MUG, 2 INHALATIONS BID
     Route: 048
     Dates: start: 2003
  11. TORSEMIDE [Concomitant]
     Dosage: 20 MG, QD
     Route: 048
     Dates: start: 2012

REACTIONS (6)
  - Injection site infection [Not Recovered/Not Resolved]
  - Injection site discolouration [Not Recovered/Not Resolved]
  - Injection site pain [Not Recovered/Not Resolved]
  - Injection site pruritus [Not Recovered/Not Resolved]
  - Injection site rash [Unknown]
  - Injection site erythema [Unknown]
